FAERS Safety Report 4519341-2 (Version None)
Quarter: 2004Q4

REPORT INFORMATION
  Report Type: 
  Country: None (occurrence: None)
  Receive Date: 20041206
  Receipt Date: 20041124
  Transmission Date: 20050328
  Serious: Yes (Hospitalization, Disabling, Other)
  Sender: FDA-Public Use
  Company Number: US-BRISTOL-MYERS SQUIBB COMPANY-12774923

PATIENT
  Sex: Female

DRUGS (2)
  1. SERZONE [Suspect]
     Indication: DEPRESSION
     Dosage: INITIATED DURING THE ^LAST PART OF APRIL 2000^
     Dates: start: 20000401
  2. XANAX [Interacting]
     Indication: DEPRESSION

REACTIONS (4)
  - CARDIAC ARREST [None]
  - CONVULSION [None]
  - DEPRESSION [None]
  - DRUG INTERACTION [None]
